FAERS Safety Report 21935031 (Version 2)
Quarter: 2023Q1

REPORT INFORMATION
  Report Type: Spontaneous
  Country: US (occurrence: US)
  Receive Date: 20230201
  Receipt Date: 20230325
  Transmission Date: 20230417
  Serious: No
  Sender: FDA-Public Use
  Company Number: None

PATIENT
  Age: 68 Year
  Sex: Female

DRUGS (2)
  1. FUROSEMIDE [Suspect]
     Active Substance: FUROSEMIDE
     Indication: Product used for unknown indication
     Route: 065
  2. ENTRESTO [Concomitant]
     Active Substance: SACUBITRIL\VALSARTAN
     Indication: Product used for unknown indication
     Dosage: HALF TABLET
     Route: 065
     Dates: start: 202208

REACTIONS (5)
  - Fluid retention [Unknown]
  - Weight increased [Unknown]
  - Abdominal distension [Unknown]
  - Dyspnoea [Recovering/Resolving]
  - Cardiac disorder [Unknown]
